FAERS Safety Report 5275620-5 (Version None)
Quarter: 2007Q1

REPORT INFORMATION
  Report Type: 
  Country: None (occurrence: None)
  Receive Date: 20070326
  Receipt Date: 20070312
  Transmission Date: 20070707
  Serious: Yes (Other)
  Sender: FDA-Public Use
  Company Number: PHFR2006GB03627

PATIENT
  Age: 65 Year
  Sex: Male

DRUGS (7)
  1. TEGRETOL [Suspect]
     Route: 065
  2. DIPYRIDAMOLE [Concomitant]
     Dosage: 200 MG, BID
     Route: 065
  3. INSULIN [Concomitant]
     Route: 065
  4. SIMVASTATIN [Suspect]
     Dosage: 40 MG, QD
  5. CELECOXIB [Concomitant]
     Dosage: 200 MG, QD
  6. RAMIPRIL [Concomitant]
     Dosage: 10 MG, QD
  7. FRUSEMIDE [Concomitant]
     Dosage: 40 MG, QMO

REACTIONS (2)
  - MYALGIA [None]
  - MYOPATHY [None]
